FAERS Safety Report 8458795-6 (Version None)
Quarter: 2012Q2

REPORT INFORMATION
  Report Type: 
  Country: None (occurrence: None)
  Receive Date: 20120622
  Receipt Date: 20120613
  Transmission Date: 20120825
  Serious: Yes (Hospitalization, Other)
  Sender: FDA-Public Use
  Company Number: JP-SANOFI-AVENTIS-2012SA025333

PATIENT
  Age: 60 Year
  Sex: Female
  Weight: 83 kg

DRUGS (2)
  1. ALLEGRA [Suspect]
     Indication: DERMATITIS ATOPIC
     Dosage: THERAPY:: END OF FEB-2012 TO END OF MAR 2012
     Route: 048
     Dates: start: 20120309, end: 20120405
  2. ALL OTHER THERAPEUTIC PRODUCTS [Concomitant]
     Indication: DERMATITIS ATOPIC
     Route: 061

REACTIONS (6)
  - NEPHROTIC SYNDROME [None]
  - OEDEMA [None]
  - HYPOPROTEINAEMIA [None]
  - THIRST [None]
  - ASCITES [None]
  - ABDOMINAL DISTENSION [None]
